FAERS Safety Report 8422923-9 (Version None)
Quarter: 2012Q2

REPORT INFORMATION
  Report Type: 
  Country: None (occurrence: None)
  Receive Date: 20120608
  Receipt Date: 20120601
  Transmission Date: 20120825
  Serious: Yes (Life-Threatening)
  Sender: FDA-Public Use
  Company Number: FR-GLAXOSMITHKLINE-B0686916A

PATIENT
  Sex: Male

DRUGS (9)
  1. ZANTAC [Suspect]
     Indication: PREMEDICATION
     Dosage: 50MG SINGLE DOSE
     Route: 042
     Dates: start: 20101116, end: 20101116
  2. SOTALOL HCL [Concomitant]
     Indication: HYPERTENSION
     Dosage: .5UNIT TWICE PER DAY
     Route: 048
  3. FERROUS SULFATE TAB [Concomitant]
     Indication: IRON DEFICIENCY ANAEMIA
     Route: 048
  4. SOLU-MEDROL [Suspect]
     Indication: PREMEDICATION
     Dosage: 80MG PER DAY
     Route: 042
     Dates: start: 20101116, end: 20101116
  5. POLARAMINE [Concomitant]
     Indication: PREMEDICATION
     Route: 042
  6. KYTRIL [Suspect]
     Indication: PREMEDICATION
     Dosage: 3MG PER DAY
     Route: 042
     Dates: start: 20101116, end: 20101116
  7. PENTOXIFYLLINE [Concomitant]
     Indication: THROMBOSIS PROPHYLAXIS
     Route: 048
  8. CHEMOTHERAPY [Concomitant]
     Route: 065
  9. CAPTOPRIL AND HYDROCHLOROTHIAZIDE [Concomitant]
     Indication: HYPERTENSION
     Route: 048

REACTIONS (9)
  - ANAPHYLACTIC SHOCK [None]
  - SHOCK [None]
  - HYPOVENTILATION [None]
  - ATRIAL FIBRILLATION [None]
  - CARDIO-RESPIRATORY ARREST [None]
  - CONVULSION [None]
  - PRURITUS GENERALISED [None]
  - HYPOTENSION [None]
  - FEELING HOT [None]
